FAERS Safety Report 24310373 (Version 1)
Quarter: 2024Q3

REPORT INFORMATION
  Report Type: Spontaneous
  Country: US (occurrence: US)
  Receive Date: 20240912
  Receipt Date: 20240912
  Transmission Date: 20241017
  Serious: Yes (Hospitalization, Other)
  Sender: DR REDDYS
  Company Number: US-DRL-USA-SPO/USA/24/0013218

PATIENT
  Age: 67 Year
  Sex: Male

DRUGS (3)
  1. AZACITIDINE [Suspect]
     Active Substance: AZACITIDINE
     Indication: Chronic myelomonocytic leukaemia
     Dates: start: 20240405
  2. NEULASTA [Suspect]
     Active Substance: PEGFILGRASTIM
     Indication: Chronic myelomonocytic leukaemia
     Dates: start: 20240408
  3. VENETOCLAX [Suspect]
     Active Substance: VENETOCLAX
     Indication: Chronic myelomonocytic leukaemia
     Dates: start: 20240405

REACTIONS (2)
  - Hepatosplenomegaly [Unknown]
  - Splenic infarction [Unknown]
